FAERS Safety Report 9361948 (Version 1)
Quarter: 2013Q2

REPORT INFORMATION
  Report Type: Spontaneous
  Country: US (occurrence: US)
  Receive Date: 20130621
  Receipt Date: 20130621
  Transmission Date: 20140414
  Serious: No
  Sender: FDA-Public Use
  Company Number: US-BAYER-2013-066303

PATIENT
  Sex: Female

DRUGS (2)
  1. OCELLA [Suspect]
     Indication: POLYCYSTIC OVARIES
     Dosage: UNK
  2. OCELLA [Suspect]
     Indication: MENSTRUAL CYCLE MANAGEMENT

REACTIONS (4)
  - Drug ineffective for unapproved indication [None]
  - Off label use [None]
  - Inappropriate schedule of drug administration [None]
  - Metrorrhagia [None]
